FAERS Safety Report 6680851-3 (Version None)
Quarter: 2010Q2

REPORT INFORMATION
  Report Type: 
  Country: None (occurrence: None)
  Receive Date: 20100413
  Receipt Date: 20100413
  Transmission Date: 20101027
  Serious: Yes (Hospitalization, Other)
  Sender: FDA-Public Use
  Company Number: None

PATIENT
  Age: 29 Year
  Sex: Female
  Weight: 56.6996 kg

DRUGS (2)
  1. DYSPORT [Suspect]
     Indication: MIGRAINE
     Dosage: 1 VIAL
  2. BOTOX [Suspect]
     Indication: MIGRAINE
     Dosage: 1 VIAL

REACTIONS (8)
  - ANXIETY [None]
  - CHEST PAIN [None]
  - CHILLS [None]
  - HYPOPHAGIA [None]
  - HYPOVENTILATION [None]
  - MALAISE [None]
  - NAUSEA [None]
  - WEIGHT DECREASED [None]
